FAERS Safety Report 14859039 (Version 2)
Quarter: 2020Q2

REPORT INFORMATION
  Report Type: Spontaneous
  Country: US (occurrence: US)
  Receive Date: 20180508
  Receipt Date: 20200529
  Transmission Date: 20200713
  Serious: Yes (Disabling)
  Sender: FDA-Public Use
  Company Number: US-TEVA-812291USA

PATIENT
  Sex: Female

DRUGS (5)
  1. DOCETAXEL. [Suspect]
     Active Substance: DOCETAXEL
     Route: 065
     Dates: start: 20140922, end: 20141125
  2. TAXOTERE [Suspect]
     Active Substance: DOCETAXEL
     Indication: LEIOMYOSARCOMA
     Route: 065
     Dates: start: 20130627, end: 20151005
  3. DOCETAXEL. [Suspect]
     Active Substance: DOCETAXEL
     Indication: LEIOMYOSARCOMA
     Route: 065
     Dates: start: 20130716, end: 20131010
  4. DOCETAXEL. [Suspect]
     Active Substance: DOCETAXEL
     Dosage: DOCETAXEL INJECTION CONCENTRATE
     Route: 065
     Dates: start: 20130627, end: 20151005
  5. DOCETAXEL. [Suspect]
     Active Substance: DOCETAXEL
     Route: 065
     Dates: start: 20130627, end: 20151005

REACTIONS (1)
  - Alopecia [Not Recovered/Not Resolved]
